FAERS Safety Report 9226122 (Version 1)
Quarter: 2013Q2

REPORT INFORMATION
  Report Type: Spontaneous
  Country: US (occurrence: US)
  Receive Date: 20130411
  Receipt Date: 20130411
  Transmission Date: 20140414
  Serious: No
  Sender: FDA-Public Use
  Company Number: US-VERTEX PHARMACEUTICALS INC.-2013-004702

PATIENT
  Age: 55 Year
  Sex: Male
  Weight: 82 kg

DRUGS (3)
  1. INCIVEK [Suspect]
     Indication: HEPATITIS C
     Dosage: 750 MG, TID
     Route: 048
     Dates: start: 201302
  2. PEGASYS [Suspect]
     Indication: HEPATITIS C
     Dosage: 180 ?G, QW
     Route: 058
     Dates: start: 201302
  3. RIBAVIRIN [Suspect]
     Indication: HEPATITIS C
     Dosage: 200 MG, BID
     Route: 048
     Dates: start: 201302

REACTIONS (3)
  - Drug dose omission [Recovered/Resolved]
  - Stomatitis [Not Recovered/Not Resolved]
  - Dry throat [Not Recovered/Not Resolved]
